FAERS Safety Report 23053468 (Version 6)
Quarter: 2023Q4

REPORT INFORMATION
  Report Type: Spontaneous
  Country: US (occurrence: US)
  Receive Date: 20231011
  Receipt Date: 20231222
  Transmission Date: 20240110
  Serious: Yes (Other)
  Sender: FDA-Public Use
  Company Number: US-BEH-2023164175

PATIENT
  Age: 60 Year
  Sex: Female

DRUGS (9)
  1. HAEGARDA [Suspect]
     Active Substance: HUMAN C1-ESTERASE INHIBITOR
     Indication: Hereditary angioedema
     Dosage: 3000 INTERNATIONAL UNIT, BIW
     Route: 058
     Dates: start: 202309
  2. HAEGARDA [Suspect]
     Active Substance: HUMAN C1-ESTERASE INHIBITOR
     Indication: Prophylaxis
  3. RUCONEST [Concomitant]
     Active Substance: HUMAN C1-ESTERASE INHIBITOR
     Route: 065
  4. STERILE WATER [Concomitant]
     Active Substance: WATER
     Route: 065
  5. SODIUM CHLORIDE [Concomitant]
     Active Substance: SODIUM CHLORIDE
     Route: 065
  6. PROLIA [Concomitant]
     Active Substance: DENOSUMAB
     Route: 065
  7. TAKHZYRO [Concomitant]
     Active Substance: LANADELUMAB-FLYO
     Route: 065
  8. XOLAIR [Concomitant]
     Active Substance: OMALIZUMAB
     Dosage: 2 DOSAGE FORM, QOW(ALTERNATE WITH 1 SYRINGE)
     Route: 058
  9. XOLAIR [Concomitant]
     Active Substance: OMALIZUMAB
     Dosage: 1 DOSAGE FORM, QOW(ALTERNATE WITH 2 SYRINGES)
     Route: 058

REACTIONS (10)
  - Hereditary angioedema [Recovered/Resolved]
  - Hereditary angioedema [Unknown]
  - Hereditary angioedema [Unknown]
  - Hereditary angioedema [Unknown]
  - Hereditary angioedema [Recovered/Resolved]
  - Hereditary angioedema [Recovered/Resolved]
  - Hereditary angioedema [Unknown]
  - Hereditary angioedema [Unknown]
  - Hereditary angioedema [Recovered/Resolved]
  - Hereditary angioedema [Unknown]

NARRATIVE: CASE EVENT DATE: 20231002
